FAERS Safety Report 10663555 (Version 1)
Quarter: 2014Q4

REPORT INFORMATION
  Report Type: Spontaneous
  Country: GB (occurrence: GB)
  Receive Date: 20141219
  Receipt Date: 20141219
  Transmission Date: 20150529
  Serious: Yes (Hospitalization)
  Sender: FDA-Public Use
  Company Number: GB-MERCK-1412GBR006973

PATIENT
  Age: 56 Year
  Sex: Female
  Weight: 57.15 kg

DRUGS (1)
  1. ZISPIN SOLTAB [Suspect]
     Active Substance: MIRTAZAPINE
     Indication: DEPRESSION
     Route: 048

REACTIONS (4)
  - Abnormal behaviour [Recovered/Resolved]
  - Mixed delusion [Recovered/Resolved]
  - Suicide attempt [Recovered/Resolved]
  - Drug prescribing error [Unknown]

NARRATIVE: CASE EVENT DATE: 20050801
